FAERS Safety Report 17077333 (Version 2)
Quarter: 2019Q4

REPORT INFORMATION
  Report Type: Spontaneous
  Country: FR (occurrence: FR)
  Receive Date: 20191126
  Receipt Date: 20191223
  Transmission Date: 20200122
  Serious: No
  Sender: FDA-Public Use
  Company Number: FR-009507513-1911FRA006930

PATIENT
  Age: 65 Year
  Sex: Female
  Weight: 50 kg

DRUGS (3)
  1. ASPIRIN. [Suspect]
     Active Substance: ASPIRIN
     Dosage: 250 MILLIGRAM, 3 SACHETS PER WEEK
  2. DIPROSTENE [Suspect]
     Active Substance: BETAMETHASONE DIPROPIONATE\BETAMETHASONE SODIUM PHOSPHATE
     Indication: EPICONDYLITIS
     Dosage: 1 AMPOULE, UNK
     Route: 058
     Dates: start: 201901
  3. ASPIRIN. [Suspect]
     Active Substance: ASPIRIN
     Indication: ANTIPHOSPHOLIPID SYNDROME
     Dosage: 250 MILLIGRAM, UNK

REACTIONS (5)
  - Injection site atrophy [Not Recovered/Not Resolved]
  - Haematoma [Not Recovered/Not Resolved]
  - Wrong technique in product usage process [Unknown]
  - Skin discolouration [Unknown]
  - Capillary fragility [Unknown]

NARRATIVE: CASE EVENT DATE: 2019
